FAERS Safety Report 16535933 (Version 2)
Quarter: 2019Q3

REPORT INFORMATION
  Report Type: Spontaneous
  Country: US (occurrence: US)
  Receive Date: 20190705
  Receipt Date: 20190927
  Transmission Date: 20191004
  Serious: Yes (Other)
  Sender: FDA-Public Use
  Company Number: US-AMGEN-USASP2019104332

PATIENT
  Age: 59 Year
  Sex: Female

DRUGS (2)
  1. REPATHA [Suspect]
     Active Substance: EVOLOCUMAB
     Indication: TYPE IIA HYPERLIPIDAEMIA
     Dosage: 140 MILLIGRAM/1 ML OVER 16 DAYS BY ADMINISTERING 0.25 ML EVERY 4 DAYS
     Route: 065
     Dates: start: 201906
  2. BABY ASPIRIN [Concomitant]
     Active Substance: ASPIRIN

REACTIONS (7)
  - Fatigue [Unknown]
  - Blood pressure increased [Unknown]
  - Feeling abnormal [Unknown]
  - Headache [Unknown]
  - Lethargy [Unknown]
  - Eye disorder [Unknown]
  - Intentional product misuse [Unknown]

NARRATIVE: CASE EVENT DATE: 2019
